FAERS Safety Report 16369678 (Version 1)
Quarter: 2019Q2

REPORT INFORMATION
  Report Type: Spontaneous
  Country: PL (occurrence: PL)
  Receive Date: 20190530
  Receipt Date: 20190530
  Transmission Date: 20190711
  Serious: Yes (Other)
  Sender: FDA-Public Use
  Company Number: PL-TEVA-2019-PL-1055663

PATIENT
  Age: 44 Year
  Sex: Male

DRUGS (4)
  1. TRITTICO CR 150 [Interacting]
     Active Substance: TRAZODONE HYDROCHLORIDE
     Dosage: 2/3 OF THE TABLET
     Route: 065
  2. TRITTICO CR 150 [Interacting]
     Active Substance: TRAZODONE HYDROCHLORIDE
     Route: 065
  3. SETALOFT [Interacting]
     Active Substance: SERTRALINE HYDROCHLORIDE
     Dosage: 100 MILLIGRAM DAILY;
     Route: 065
     Dates: start: 2019, end: 2019
  4. SETALOFT [Suspect]
     Active Substance: SERTRALINE HYDROCHLORIDE
     Dosage: 50 MILLIGRAM DAILY;
     Route: 065
     Dates: start: 2019, end: 2019

REACTIONS (15)
  - Hypothermia [Recovered/Resolved]
  - Nausea [Recovered/Resolved]
  - Dyskinesia [Recovered/Resolved]
  - Hyperhidrosis [Recovered/Resolved]
  - Chills [Recovered/Resolved]
  - Serotonin syndrome [Recovered/Resolved]
  - Social avoidant behaviour [Recovered/Resolved]
  - Hypertonia [Recovered/Resolved]
  - Chest pain [Recovered/Resolved]
  - Pollakiuria [Recovered/Resolved]
  - Therapeutic product effect incomplete [Unknown]
  - Feeling cold [Recovered/Resolved]
  - Tinnitus [Recovered/Resolved]
  - Feeling abnormal [Recovered/Resolved]
  - Malaise [Recovered/Resolved]

NARRATIVE: CASE EVENT DATE: 2019
